FAERS Safety Report 9718765 (Version 1)
Quarter: 2013Q4

REPORT INFORMATION
  Report Type: Not Available
  Country: US (occurrence: US)
  Receive Date: 20131125
  Receipt Date: 20131125
  Transmission Date: 20140711
  Serious: No
  Sender: FDA-Public Use
  Company Number: US-H. LUNDBECK A/S-DKLU1094602

PATIENT
  Age: 2 Year
  Sex: Female

DRUGS (3)
  1. ONFI (ORAL SUSPENSION) [Suspect]
     Indication: PRODUCT USED FOR UNKNOWN INDICATION
     Dates: start: 20131016
  2. ONFI [Suspect]
     Indication: PRODUCT USED FOR UNKNOWN INDICATION
     Route: 048
  3. ONFI [Suspect]
     Route: 048

REACTIONS (4)
  - Aversion [Unknown]
  - Vomiting [Unknown]
  - Agitation [Unknown]
  - Incorrect dose administered [Unknown]
